FAERS Safety Report 9097467 (Version 1)
Quarter: 2013Q1

REPORT INFORMATION
  Report Type: Spontaneous
  Country: US (occurrence: US)
  Receive Date: 20130212
  Receipt Date: 20130212
  Transmission Date: 20140127
  Serious: Yes (Other)
  Sender: FDA-Public Use
  Company Number: US-ASTRAZENECA-2013SE08333

PATIENT
  Age: 62 Year
  Sex: Female
  Weight: 97.5 kg

DRUGS (3)
  1. NEXIUM [Suspect]
     Indication: GASTROOESOPHAGEAL REFLUX DISEASE
     Route: 048
     Dates: start: 2005
  2. NOLVADEX [Suspect]
     Route: 048
  3. OTHER MEDICATIONS [Concomitant]

REACTIONS (15)
  - Spinal fracture [Unknown]
  - Cataract [Unknown]
  - Rib fracture [Unknown]
  - Intraocular pressure increased [Unknown]
  - Osteoporosis [Unknown]
  - Restless legs syndrome [Unknown]
  - Osteopenia [Unknown]
  - Arthritis [Unknown]
  - Bursitis [Unknown]
  - Multiple allergies [Unknown]
  - Asthma [Unknown]
  - Sinus disorder [Unknown]
  - Bronchitis [Unknown]
  - Drug hypersensitivity [Unknown]
  - Drug dose omission [Unknown]
